FAERS Safety Report 6016203-9 (Version None)
Quarter: 2008Q4

REPORT INFORMATION
  Report Type: 
  Country: None (occurrence: None)
  Receive Date: 20081218
  Receipt Date: 20081202
  Transmission Date: 20090506
  Serious: Yes (Other)
  Sender: FDA-Public Use
  Company Number: 14426035

PATIENT
  Sex: Female

DRUGS (5)
  1. EMSAM [Suspect]
     Dosage: 6 MILLIGRAM, TD
     Route: 062
     Dates: start: 20081128
  2. ADDERALL 10 [Suspect]
  3. DARVOCET [Suspect]
  4. GEODON [Concomitant]
  5. KLONOPIN [Concomitant]

REACTIONS (6)
  - DRUG ADMINISTRATION ERROR [None]
  - DRUG INTERACTION [None]
  - HYPERTENSIVE CRISIS [None]
  - MUSCULOSKELETAL STIFFNESS [None]
  - PAIN IN JAW [None]
  - PALPITATIONS [None]
